FAERS Safety Report 16970044 (Version 1)
Quarter: 2019Q4

REPORT INFORMATION
  Report Type: Spontaneous
  Country: US (occurrence: US)
  Receive Date: 20191029
  Receipt Date: 20191029
  Transmission Date: 20200122
  Serious: Yes (Other)
  Sender: FDA-Public Use
  Company Number: US-PFIZER INC-2019463115

PATIENT
  Age: 78 Year
  Sex: Male

DRUGS (3)
  1. PIPERACILLIN/TAZOBACTAM [Suspect]
     Active Substance: PIPERACILLIN SODIUM\TAZOBACTAM SODIUM
     Indication: GRAFT INFECTION
     Dosage: UNK
     Route: 042
  2. MEROPENEM. [Suspect]
     Active Substance: MEROPENEM
     Indication: GRAFT INFECTION
     Dosage: UNK
     Route: 042
  3. VANCOMYCIN HCL [Suspect]
     Active Substance: VANCOMYCIN HYDROCHLORIDE
     Indication: GRAFT INFECTION
     Dosage: UNK
     Route: 042

REACTIONS (3)
  - Candida infection [Recovering/Resolving]
  - Proteus test positive [Recovering/Resolving]
  - Drug ineffective [Recovering/Resolving]
